FAERS Safety Report 11923099 (Version 1)
Quarter: 2016Q1

REPORT INFORMATION
  Report Type: Report from Study
  Country: US (occurrence: US)
  Receive Date: 20160117
  Receipt Date: 20160117
  Transmission Date: 20160526
  Serious: Yes (Hospitalization)
  Sender: FDA-Public Use
  Company Number: US-BIOGEN-2016BI00170558

PATIENT
  Sex: Female

DRUGS (1)
  1. TECFIDERA [Suspect]
     Active Substance: DIMETHYL FUMARATE
     Indication: MULTIPLE SCLEROSIS
     Dosage: MAINTENANCE DOSE
     Route: 048
     Dates: start: 20140420, end: 20151201

REACTIONS (8)
  - Bronchitis [Recovered/Resolved]
  - Nuclear magnetic resonance imaging abnormal [Unknown]
  - Mobility decreased [Unknown]
  - Paranasal sinus mucosal hypertrophy [Unknown]
  - Lipoma [Not Recovered/Not Resolved]
  - Seizure [Recovered/Resolved]
  - Alopecia [Not Recovered/Not Resolved]
  - Polymenorrhoea [Unknown]

NARRATIVE: CASE EVENT DATE: 2014
